FAERS Safety Report 4875122-1 (Version None)
Quarter: 2006Q1

REPORT INFORMATION
  Report Type: 
  Country: None (occurrence: None)
  Receive Date: 20060109
  Receipt Date: 20051202
  Transmission Date: 20060701
  Serious: Yes (Other)
  Sender: FDA-Public Use
  Company Number: DE-GLAXOSMITHKLINE-D0048169A

PATIENT
  Age: 31 Year
  Sex: Male
  Weight: 93 kg

DRUGS (3)
  1. AVANDAMET [Suspect]
     Route: 048
     Dates: start: 20050601
  2. GLUCOBAY [Concomitant]
     Dosage: 50MG UNKNOWN
     Route: 048
  3. QUINAPRIL + HYDROCHLOROTHIAZIDE [Concomitant]
     Dosage: 32.5MG UNKNOWN
     Route: 048

REACTIONS (1)
  - LEUKOCYTOSIS [None]
